FAERS Safety Report 8282244-4 (Version None)
Quarter: 2012Q2

REPORT INFORMATION
  Report Type: 
  Country: None (occurrence: None)
  Receive Date: 20120413
  Receipt Date: 20120409
  Transmission Date: 20120825
  Serious: Yes (Hospitalization, Other)
  Sender: FDA-Public Use
  Company Number: US-BAYER-201010383NA

PATIENT
  Age: 22 Year
  Sex: Female
  Weight: 73 kg

DRUGS (3)
  1. YASMIN [Suspect]
     Indication: CONTRACEPTION
     Route: 048
     Dates: start: 20041101
  2. YASMIN [Suspect]
     Indication: PREMENSTRUAL SYNDROME
  3. ANAPROX [Concomitant]
     Dosage: UNK
     Dates: start: 20050101

REACTIONS (6)
  - PAIN IN EXTREMITY [None]
  - THROMBOSIS [None]
  - PULMONARY EMBOLISM [None]
  - MUSCLE SPASMS [None]
  - DYSPNOEA [None]
  - DEEP VEIN THROMBOSIS [None]
